FAERS Safety Report 22988756 (Version 2)
Quarter: 2023Q4

REPORT INFORMATION
  Report Type: Spontaneous
  Country: JP (occurrence: JP)
  Receive Date: 20230926
  Receipt Date: 20231130
  Transmission Date: 20240110
  Serious: No
  Sender: FDA-Public Use
  Company Number: JP-002147023-NVSJ2023JP014043

PATIENT

DRUGS (1)
  1. GILENYA [Suspect]
     Active Substance: FINGOLIMOD HYDROCHLORIDE
     Indication: Multiple sclerosis
     Dosage: UNK
     Route: 048

REACTIONS (3)
  - Cognitive disorder [Recovered/Resolved]
  - COVID-19 [Recovered/Resolved]
  - Dehydration [Recovered/Resolved]
